FAERS Safety Report 7161899-1 (Version None)
Quarter: 2010Q4

REPORT INFORMATION
  Report Type: 
  Country: None (occurrence: None)
  Receive Date: 20101215
  Receipt Date: 20100715
  Transmission Date: 20110411
  Serious: Yes (Other)
  Sender: FDA-Public Use
  Company Number: ES-PFIZER INC-2010088824

PATIENT
  Age: 59 Year
  Sex: Male

DRUGS (1)
  1. LYRICA [Suspect]
     Indication: NECK PAIN
     Dosage: 150 MG, 2X/DAY
     Route: 065
     Dates: start: 20100218, end: 20100301

REACTIONS (3)
  - APHASIA [None]
  - DYSPNOEA [None]
  - NASAL CONGESTION [None]
